FAERS Safety Report 10926233 (Version 3)
Quarter: 2015Q2

REPORT INFORMATION
  Report Type: Report from Study
  Country: FR (occurrence: FR)
  Receive Date: 20150318
  Receipt Date: 20150501
  Transmission Date: 20150821
  Serious: Yes (Death, Other)
  Sender: FDA-Public Use
  Company Number: PHHY2015FR018029

PATIENT
  Age: 85 Year
  Sex: Male

DRUGS (3)
  1. EVEROLIMUS [Suspect]
     Active Substance: EVEROLIMUS
     Indication: RENAL CANCER
     Dosage: 5 MG, UNK
     Route: 048
     Dates: start: 20141203, end: 20150116
  2. ZOMETA [Suspect]
     Active Substance: ZOLEDRONIC ACID
     Indication: RENAL CANCER
     Dosage: 4 MG, UNK
     Route: 042
     Dates: start: 20141203, end: 20150116
  3. NEORECORMON [Concomitant]
     Active Substance: ERYTHROPOIETIN
     Indication: ANAEMIA
     Dosage: 500 IU
     Route: 065
     Dates: start: 20150115

REACTIONS (7)
  - Renal cancer [Fatal]
  - Dyspnoea [Not Recovered/Not Resolved]
  - Fungal infection [Recovered/Resolved]
  - Pleural effusion [Recovered/Resolved]
  - Depression [Not Recovered/Not Resolved]
  - General physical health deterioration [Fatal]
  - Malignant neoplasm progression [Fatal]

NARRATIVE: CASE EVENT DATE: 201501
